FAERS Safety Report 4273845-9 (Version None)
Quarter: 2004Q1

REPORT INFORMATION
  Report Type: 
  Country: None (occurrence: None)
  Receive Date: 20040115
  Receipt Date: 20031224
  Transmission Date: 20041129
  Serious: Yes (Hospitalization, Other)
  Sender: FDA-Public Use
  Company Number: USA031049600

PATIENT
  Age: 35 Year
  Sex: Male

DRUGS (2)
  1. ZYPREXA [Suspect]
     Indication: BIPOLAR DISORDER
     Dosage: 15 MG
     Dates: start: 20010101
  2. DEPAKOTE [Concomitant]

REACTIONS (2)
  - PANCREATIC MASS [None]
  - PANCREATITIS ACUTE [None]
